FAERS Safety Report 10484836 (Version 2)
Quarter: 2014Q4

REPORT INFORMATION
  Report Type: Report from Study
  Country: US (occurrence: US)
  Receive Date: 20140930
  Receipt Date: 20141007
  Transmission Date: 20150528
  Serious: Yes (Hospitalization)
  Sender: FDA-Public Use
  Company Number: US-BRISTOL-MYERS SQUIBB COMPANY-21440268

PATIENT
  Age: 55 Year
  Sex: Female
  Weight: 63.6 kg

DRUGS (1)
  1. IPILIMUMAB [Suspect]
     Active Substance: IPILIMUMAB
     Indication: MALIGNANT MELANOMA
     Dosage: IND.THRPY:IPI-OVE 90MI,Q3 WKSX4DOSES.?MAN.TRPY:IPI-OVE 90MI,Q12 WEK.TOT-DOS-191MG,LAST DOS-22-8-14.
     Route: 042
     Dates: start: 20140804

REACTIONS (6)
  - Amylase increased [Recovering/Resolving]
  - Aspartate aminotransferase increased [Recovering/Resolving]
  - Gastritis [Recovering/Resolving]
  - Lipase increased [Recovering/Resolving]
  - Pyrexia [Recovered/Resolved]
  - Oesophagitis [Recovering/Resolving]

NARRATIVE: CASE EVENT DATE: 201409
